FAERS Safety Report 10165188 (Version 1)
Quarter: 2014Q2

REPORT INFORMATION
  Report Type: Spontaneous
  Country: US (occurrence: US)
  Receive Date: 20140510
  Receipt Date: 20140510
  Transmission Date: 20141212
  Serious: No
  Sender: FDA-Public Use
  Company Number: US-BRISTOL-MYERS SQUIBB COMPANY-19736388

PATIENT
  Age: 56 Year
  Sex: Male
  Weight: 103.85 kg

DRUGS (4)
  1. BYDUREON [Suspect]
     Indication: TYPE 2 DIABETES MELLITUS
     Dosage: THERAPY ON 1NOV13
     Dates: start: 2013
  2. GLYBURIDE + METFORMIN HCL [Concomitant]
     Dosage: 1DF:5/500MG
     Route: 048
  3. AMLODIPINE BESYLATE+BENAZEPRIL HCL [Concomitant]
     Dosage: 1DF:10/40 MG
     Route: 048
  4. HYDROCHLOROTHIAZIDE [Concomitant]
     Dosage: 1/2 TAB
     Route: 048

REACTIONS (1)
  - Expired product administered [Unknown]
